FAERS Safety Report 5985042-7 (Version None)
Quarter: 2008Q4

REPORT INFORMATION
  Report Type: 
  Country: None (occurrence: None)
  Receive Date: 20081208
  Receipt Date: 20081114
  Transmission Date: 20090506
  Serious: Yes (Hospitalization)
  Sender: FDA-Public Use
  Company Number: US-AMGEN-QUU315256

PATIENT
  Sex: Male
  Weight: 90.8 kg

DRUGS (18)
  1. ENBREL [Suspect]
     Indication: PSORIASIS
     Route: 058
     Dates: start: 20050106, end: 20050217
  2. ENBREL [Suspect]
     Indication: PSORIATIC ARTHROPATHY
  3. ATENOLOL [Concomitant]
     Route: 048
  4. ULTRAM [Concomitant]
     Route: 048
  5. METHOTREXATE [Concomitant]
     Route: 048
     Dates: start: 20040901
  6. CYCLOBENZAPRINE HCL [Concomitant]
     Route: 048
  7. FOLIC ACID [Concomitant]
     Route: 048
  8. CLARITIN [Concomitant]
     Route: 048
  9. DOVONEX [Concomitant]
     Route: 061
  10. WARFARIN SODIUM [Concomitant]
     Route: 048
  11. NABUMETONE [Concomitant]
     Route: 048
  12. DIPYRIDAMOLE [Concomitant]
     Route: 048
  13. TRIAMTERENE AND HYDROCHLOROTHIAZIDE [Concomitant]
  14. NORVASC [Concomitant]
     Route: 048
  15. FLONASE [Concomitant]
  16. CIALIS [Concomitant]
  17. POTASSIUM CHLORIDE [Concomitant]
     Route: 048
  18. GUAIFENESIN [Concomitant]
     Route: 048

REACTIONS (7)
  - DRUG INEFFECTIVE [None]
  - MUSCULOSKELETAL STIFFNESS [None]
  - PANCYTOPENIA [None]
  - PLEURAL EFFUSION [None]
  - PSORIATIC ARTHROPATHY [None]
  - RENAL CANCER [None]
  - WHITE BLOOD CELL COUNT ABNORMAL [None]
